FAERS Safety Report 15324683 (Version 1)
Quarter: 2018Q3

REPORT INFORMATION
  Report Type: Spontaneous
  Country: US (occurrence: US)
  Receive Date: 20180828
  Receipt Date: 20180828
  Transmission Date: 20181010
  Serious: Yes (Hospitalization)
  Sender: FDA-Public Use
  Company Number: US-AMGEN-USASP2018117502

PATIENT
  Age: 70 Year
  Sex: Male

DRUGS (11)
  1. CYCLOPHOSPHAMIDE. [Suspect]
     Active Substance: CYCLOPHOSPHAMIDE
     Indication: PRODUCT USED FOR UNKNOWN INDICATION
     Dosage: 150 MG/M2, BID (REGIMEN A: OVER 3 HOURS TWICE A DAY ON DAYS 1?3)
     Route: 042
  2. PEGFILGRASTIM [Suspect]
     Active Substance: PEGFILGRASTIM
     Indication: GRANULOCYTE COUNT DECREASED
     Dosage: 6 MG, UNK (ON DAY4)
     Route: 058
  3. INOTUZUMAB OZOGAMICIN [Suspect]
     Active Substance: INOTUZUMAB OZOGAMICIN
     Indication: ACUTE LYMPHOCYTIC LEUKAEMIA
     Dosage: 0.6 MG/M2, UNK (REGIMEN A: IV OVER 1 HOUR ON DAY 3; REGIMEN B: IV ON DAY 2 OR 3 (CYCLES 2 AND 4 ONLY
     Route: 042
     Dates: start: 20171108, end: 20180208
  4. MESNA. [Suspect]
     Active Substance: MESNA
     Indication: PRODUCT USED FOR UNKNOWN INDICATION
     Dosage: 300 MG/M2, QD (REGIMEN A: DAILY OVER 24 HOURS FOR 3 DAYS ON DAYS 1?3)
     Route: 042
  5. DEXAMETHASONE PHOSPHATE [Suspect]
     Active Substance: DEXAMETHASONE PHOSPHATE
     Indication: PRODUCT USED FOR UNKNOWN INDICATION
     Dosage: 20 MG, QD (REGIMEN A: DAILY FOR 4 DAYS ON DAYS 1?4 AND DAYS 11?14)
     Route: 042
  6. RITUXIMAB. [Suspect]
     Active Substance: RITUXIMAB
     Indication: PRODUCT USED FOR UNKNOWN INDICATION
     Dosage: 375 MG/M2, UNK (REGIMEN A: DAY 2 AND 8 (CYCLES 1 AND 3) REGIMEN B: DAY 2 AND 8 OF CYCLES 2 AND 4
     Route: 042
  7. FILGRASTIM [Suspect]
     Active Substance: FILGRASTIM
     Indication: GRANULOCYTE COUNT DECREASED
     Dosage: UNK UNK, QD (5?10 MCG/KG DAILY)
     Route: 058
  8. VINCRISTINE SULFATE. [Suspect]
     Active Substance: VINCRISTINE SULFATE
     Indication: PRODUCT USED FOR UNKNOWN INDICATION
     Dosage: 2 MG, UNK (REGIMEN A: IV DAY 1 AND 8)
     Route: 042
  9. METHOTREXATE SODIUM. [Suspect]
     Active Substance: METHOTREXATE SODIUM
     Dosage: 200 MG/M2, UNK (REGIMEN B: INFUSION OVER 22 HOURS ON DAY 1)
     Route: 042
  10. ARA?C [Suspect]
     Active Substance: CYTARABINE
     Indication: PRODUCT USED FOR UNKNOWN INDICATION
     Dosage: 500 MG/M2, UNK (REGIMEN B: OVER 3 HOURS TWICE A DAY X 4 DOSES ON DAYS 2 AND 3)
     Route: 042
  11. METHOTREXATE SODIUM. [Suspect]
     Active Substance: METHOTREXATE SODIUM
     Indication: PRODUCT USED FOR UNKNOWN INDICATION
     Dosage: 50 MG/M2, UNK (REGIMEN B: 50 MG/M2 IV OVER 2HRS ON DAY 1)
     Route: 042

REACTIONS (1)
  - Central nervous system leukaemia [Unknown]

NARRATIVE: CASE EVENT DATE: 20180710
